FAERS Safety Report 10220315 (Version 3)
Quarter: 2014Q3

REPORT INFORMATION
  Report Type: Report from Study
  Country: MX (occurrence: MX)
  Receive Date: 20140606
  Receipt Date: 20140801
  Transmission Date: 20150326
  Serious: Yes (Other)
  Sender: FDA-Public Use
  Company Number: MX-ORION CORPORATION ORION PHARMA-ENTC2014-0154

PATIENT
  Age: 60 Year
  Sex: Female

DRUGS (6)
  1. STALEVO [Suspect]
     Active Substance: CARBIDOPA\ENTACAPONE\LEVODOPA
     Dosage: STRENGTH: 50/12.5/200 MG
     Route: 048
     Dates: start: 201402, end: 201402
  2. DAGLA [Concomitant]
     Indication: HIATUS HERNIA
     Route: 065
     Dates: start: 201311
  3. DCGLA [Concomitant]
     Indication: GASTROOESOPHAGEAL REFLUX DISEASE
     Dosage: 3 UNSPECIFIED UNITS
     Route: 065
     Dates: start: 201401
  4. TIBOLONE [Concomitant]
     Active Substance: TIBOLONE
     Indication: MATRIXECTOMY
     Route: 065
  5. STALEVO [Suspect]
     Active Substance: CARBIDOPA\ENTACAPONE\LEVODOPA
     Indication: PARKINSON^S DISEASE
     Dosage: STRENGTH: 100/25/200 MG
     Route: 048
     Dates: start: 20140118, end: 201402
  6. STALEVO [Suspect]
     Active Substance: CARBIDOPA\ENTACAPONE\LEVODOPA
     Route: 048

REACTIONS (10)
  - Therapy cessation [Unknown]
  - Abasia [Not Recovered/Not Resolved]
  - Incorrect dose administered [Unknown]
  - Insomnia [Recovered/Resolved]
  - Somnolence [Not Recovered/Not Resolved]
  - Drug ineffective [Unknown]
  - Pain in extremity [Not Recovered/Not Resolved]
  - Early satiety [Unknown]
  - Nausea [Recovered/Resolved]
  - Head titubation [Not Recovered/Not Resolved]

NARRATIVE: CASE EVENT DATE: 201401
